FAERS Safety Report 7656768-4 (Version None)
Quarter: 2011Q3

REPORT INFORMATION
  Report Type: 
  Country: None (occurrence: None)
  Receive Date: 20110804
  Receipt Date: 20110802
  Transmission Date: 20111222
  Serious: Yes (Other)
  Sender: FDA-Public Use
  Company Number: US-PFIZER INC-2011176459

PATIENT
  Sex: Female
  Weight: 81.179 kg

DRUGS (5)
  1. DILACOR XR [Concomitant]
     Indication: HYPERTENSION
     Dosage: UNK
  2. ANTIVERT [Suspect]
     Indication: BALANCE DISORDER
     Dosage: 25 MG, AS NEEDED
     Route: 048
     Dates: end: 20110731
  3. ESTRACE [Concomitant]
     Indication: HORMONE LEVEL ABNORMAL
     Dosage: UNK
  4. DYAZIDE [Concomitant]
     Indication: HYPERTENSION
     Dosage: UNK
  5. ANTIVERT [Suspect]
     Indication: DIZZINESS

REACTIONS (4)
  - BODY HEIGHT DECREASED [None]
  - SPINAL COLUMN STENOSIS [None]
  - ASTHMA [None]
  - HYPERSENSITIVITY [None]
